FAERS Safety Report 6423671-7 (Version None)
Quarter: 2009Q4

REPORT INFORMATION
  Report Type: 
  Country: None (occurrence: None)
  Receive Date: 20091102
  Receipt Date: 20091014
  Transmission Date: 20100525
  Serious: Yes (Hospitalization)
  Sender: FDA-Public Use
  Company Number: JP-MERCK-0910USA02288

PATIENT
  Age: 65 Year
  Sex: Male

DRUGS (2)
  1. DECADRON [Suspect]
     Route: 048
     Dates: start: 20080808
  2. PREDNISOLONE [Concomitant]
     Indication: OSTEOARTHRITIS
     Route: 065
     Dates: start: 20080621

REACTIONS (1)
  - DIABETIC KETOACIDOSIS [None]
